FAERS Safety Report 4601376-2 (Version None)
Quarter: 2005Q2

REPORT INFORMATION
  Report Type: 
  Country: None (occurrence: None)
  Receive Date: 20050204
  Receipt Date: 20040304
  Transmission Date: 20051028
  Serious: Yes (Other)
  Sender: FDA-Public Use
  Company Number: US-SHR-03-016615

PATIENT
  Age: 33 Year
  Sex: Female
  Weight: 54.9 kg

DRUGS (5)
  1. MIRENA [Suspect]
     Indication: CONTRACEPTION
     Dosage: 20 UG/DAY, CONT, INTRA-UTERINE
     Route: 015
     Dates: start: 20030501, end: 20031121
  2. MIRENA [Suspect]
     Indication: CONTRACEPTION
     Dosage: 20 UG/DAY, CONT, INTRA-UTERINE
     Route: 015
     Dates: start: 20030623
  3. PROVENTIL [Concomitant]
  4. ADVAIR DISKUS (FLUTICASONE PROPIONATE) [Concomitant]
  5. NASACORT [Concomitant]

REACTIONS (1)
  - UTERINE PERFORATION [None]
